FAERS Safety Report 18106668 (Version 2)
Quarter: 2020Q3

REPORT INFORMATION
  Report Type: Spontaneous
  Country: NL (occurrence: NL)
  Receive Date: 20200804
  Receipt Date: 20200925
  Transmission Date: 20201103
  Serious: Yes (Other)
  Sender: FDA-Public Use
  Company Number: NL-ASTELLAS-2020US026016

PATIENT
  Age: 26 Year
  Sex: Male

DRUGS (1)
  1. BETMIGA [Suspect]
     Active Substance: MIRABEGRON
     Indication: PRODUCT USED FOR UNKNOWN INDICATION
     Route: 065
     Dates: start: 20200623, end: 20200718

REACTIONS (14)
  - Arrhythmia [Recovering/Resolving]
  - Paraplegia [Unknown]
  - Dizziness [Recovering/Resolving]
  - Palpitations [Recovering/Resolving]
  - Confusional state [Recovering/Resolving]
  - Back injury [Unknown]
  - Autonomic nervous system imbalance [Unknown]
  - Malaise [Unknown]
  - Fatigue [Unknown]
  - Hyperventilation [Unknown]
  - Pain [Unknown]
  - Blood pressure increased [Recovering/Resolving]
  - Road traffic accident [Unknown]
  - Paraesthesia [Recovering/Resolving]
